FAERS Safety Report 24397058 (Version 1)
Quarter: 2024Q4

REPORT INFORMATION
  Report Type: Other
  Country: US (occurrence: US)
  Receive Date: 20241004
  Receipt Date: 20241004
  Transmission Date: 20250115
  Serious: Yes (Death, Other)
  Sender: ACI HEALTHCARE
  Company Number: US-ACI HealthCare Limited-2162473

PATIENT
  Age: 95 Year

DRUGS (2)
  1. DONEPEZIL HYDROCHLORIDE [Suspect]
     Active Substance: DONEPEZIL HYDROCHLORIDE
     Indication: Product used for unknown indication
  2. MORPHINE SULFATE [Suspect]
     Active Substance: MORPHINE SULFATE

REACTIONS (7)
  - Sepsis [Fatal]
  - Overdose [Unknown]
  - Toxicity to various agents [Fatal]
  - Hypertension [Fatal]
  - Arteriosclerosis [Fatal]
  - Dementia [Fatal]
  - Small intestinal obstruction [Fatal]
